FAERS Safety Report 7361953-5 (Version None)
Quarter: 2011Q1

REPORT INFORMATION
  Report Type: 
  Country: None (occurrence: None)
  Receive Date: 20110318
  Receipt Date: 20110314
  Transmission Date: 20110831
  Serious: Yes (Death, Other)
  Sender: FDA-Public Use
  Company Number: PHHY2011CN21161

PATIENT
  Age: 50 Year
  Sex: Male

DRUGS (5)
  1. VINCRISTINE [Suspect]
     Dosage: 2 MG, UNK
  2. DOXORUBICIN HCL [Suspect]
     Dosage: 50 MG/M2, UNK
  3. PREDNISONE [Suspect]
     Dosage: 40 MG/M2, UNK
  4. RITUXIMAB [Suspect]
     Dosage: 375 MG/M2, UNK
     Route: 042
  5. CYCLOPHOSPHAMIDE [Suspect]
     Dosage: 750 MG/M2, UNK

REACTIONS (12)
  - JAUNDICE [None]
  - NAUSEA [None]
  - VIRAL LOAD INCREASED [None]
  - VOMITING [None]
  - HEPATIC FUNCTION ABNORMAL [None]
  - HEPATIC FAILURE [None]
  - HEPATITIS B [None]
  - DECREASED APPETITE [None]
  - HEPATORENAL SYNDROME [None]
  - FATIGUE [None]
  - DIARRHOEA [None]
  - LIVER TRANSPLANT [None]
